FAERS Safety Report 9371266 (Version 1)
Quarter: 2013Q2

REPORT INFORMATION
  Report Type: Spontaneous
  Country: US (occurrence: None)
  Receive Date: 20130626
  Receipt Date: 20130626
  Transmission Date: 20140414
  Serious: Yes (Hospitalization)
  Sender: FDA-Public Use
  Company Number: None

PATIENT
  Sex: Male

DRUGS (7)
  1. SUCRAID [Suspect]
     Indication: SUCRASE-ISOMALTASE DEFICIENCY
     Dosage: 2ML MIXED IN 2-4 OZS OF WATER WITH EACH MEAL (3) NO
     Route: 048
     Dates: start: 20130605, end: 20130618
  2. SUCRAID [Suspect]
     Indication: LIPASE DECREASED
     Dosage: 2ML MIXED IN 2-4 OZS OF WATER WITH EACH MEAL (3) NO
     Route: 048
     Dates: start: 20130605, end: 20130618
  3. AQUADEKS [Concomitant]
  4. CLARITIN [Concomitant]
  5. OMEPRAZOLE [Concomitant]
  6. PANCREASE [Concomitant]
  7. SINGULAIR [Concomitant]

REACTIONS (2)
  - Dehydration [None]
  - Adverse drug reaction [None]
